FAERS Safety Report 8445830-4 (Version None)
Quarter: 2012Q2

REPORT INFORMATION
  Report Type: 
  Country: None (occurrence: None)
  Receive Date: 20120618
  Receipt Date: 20120612
  Transmission Date: 20120825
  Serious: Yes (Hospitalization, Other)
  Sender: FDA-Public Use
  Company Number: PHHY2010US85646

PATIENT
  Sex: Female

DRUGS (19)
  1. CARVEDILOL [Concomitant]
     Dosage: 1 DF, BID
     Route: 048
  2. LORTAB [Concomitant]
  3. MOBIC [Concomitant]
     Dosage: 15 MG, DAILY
     Route: 048
  4. DIAZEPAM [Concomitant]
     Dosage: 5 MG, PRN
  5. BENADRYL [Concomitant]
  6. NASAL SPRAY [Concomitant]
  7. SOMA [Concomitant]
  8. DEMEROL [Concomitant]
     Indication: SPINAL PAIN
  9. CLONAZEPAM [Concomitant]
     Indication: BALANCE DISORDER
  10. KLONOPIN [Concomitant]
  11. TEGRETOL [Concomitant]
  12. LISINOPRIL AND HYDROCHLOROTHIAZIDE [Concomitant]
  13. IMDUR [Concomitant]
     Dosage: 30 MG, BID
     Route: 048
  14. BETASERON [Concomitant]
  15. VALIUM [Concomitant]
  16. PREDNISONE [Concomitant]
  17. SERTRALINE HYDROCHLORIDE [Concomitant]
     Dosage: 150 MG, DAILY
     Route: 048
  18. GILENYA [Suspect]
     Indication: MULTIPLE SCLEROSIS
     Dosage: 0.5 MG, UNK
     Route: 048
     Dates: start: 20101206
  19. RESTORIL [Concomitant]

REACTIONS (35)
  - BRONCHOSPASM [None]
  - C-REACTIVE PROTEIN INCREASED [None]
  - INFLUENZA [None]
  - BLOOD GLUCOSE INCREASED [None]
  - PRODUCTIVE COUGH [None]
  - WHEEZING [None]
  - NAUSEA [None]
  - HEADACHE [None]
  - BLOOD POTASSIUM DECREASED [None]
  - PNEUMONIA [None]
  - PNEUMONIA MYCOPLASMAL [None]
  - HYPERTENSION [None]
  - BACK PAIN [None]
  - BLOOD ALBUMIN DECREASED [None]
  - CARDIAC FAILURE CONGESTIVE [None]
  - CHEST DISCOMFORT [None]
  - NEUTROPHIL COUNT INCREASED [None]
  - HYPERHIDROSIS [None]
  - MYCOPLASMA TEST POSITIVE [None]
  - DRUG INTOLERANCE [None]
  - NASOPHARYNGITIS [None]
  - PRURITUS [None]
  - BRAIN NATRIURETIC PEPTIDE INCREASED [None]
  - ATELECTASIS [None]
  - COUGH [None]
  - MALAISE [None]
  - LYMPHOCYTE COUNT DECREASED [None]
  - PROTEIN TOTAL DECREASED [None]
  - CHILLS [None]
  - DIARRHOEA [None]
  - ANION GAP INCREASED [None]
  - PYREXIA [None]
  - BREATH SOUNDS ABNORMAL [None]
  - BLOOD BILIRUBIN DECREASED [None]
  - BLOOD CALCIUM DECREASED [None]
